FAERS Safety Report 5726597-7 (Version None)
Quarter: 2008Q2

REPORT INFORMATION
  Report Type: 
  Country: None (occurrence: None)
  Receive Date: 20080502
  Receipt Date: 20080423
  Transmission Date: 20081010
  Serious: Yes (Hospitalization)
  Sender: FDA-Public Use
  Company Number: US-ABBOTT-08P-163-0434125-00

PATIENT
  Sex: Female
  Weight: 86.26 kg

DRUGS (3)
  1. TRICOR [Suspect]
     Indication: BLOOD TRIGLYCERIDES INCREASED
     Route: 048
     Dates: start: 20070701, end: 20071101
  2. NICOTINIC ACID [Concomitant]
     Indication: BLOOD TRIGLYCERIDES
     Route: 048
     Dates: start: 20080422
  3. OMEPRAZOLE [Concomitant]
     Indication: PROPHYLAXIS AGAINST GASTROINTESTINAL ULCER
     Route: 048
     Dates: start: 20080201

REACTIONS (15)
  - BACK PAIN [None]
  - BARRETT'S OESOPHAGUS [None]
  - CHEST PAIN [None]
  - CONTRAST MEDIA ALLERGY [None]
  - DYSPEPSIA [None]
  - DYSPNOEA [None]
  - HAEMOPTYSIS [None]
  - MOBILITY DECREASED [None]
  - NODULE [None]
  - PAIN [None]
  - PAINFUL RESPIRATION [None]
  - PNEUMONIA [None]
  - PULMONARY EMBOLISM [None]
  - SCAR [None]
  - WEIGHT DECREASED [None]
